FAERS Safety Report 10032743 (Version 2)
Quarter: 2014Q1

REPORT INFORMATION
  Report Type: Spontaneous
  Country: US (occurrence: US)
  Receive Date: 20140324
  Receipt Date: 20140324
  Transmission Date: 20141002
  Serious: Yes (Hospitalization, Other)
  Sender: FDA-Public Use
  Company Number: US-BAXTER-2014BAX010733

PATIENT
  Age: 27 Year
  Sex: Female

DRUGS (2)
  1. DIANEAL LOW CALCIUM [Suspect]
     Indication: RENAL FAILURE CHRONIC
     Route: 033
     Dates: start: 201401
  2. DIANEAL LOW CALCIUM [Suspect]
     Indication: RENAL FAILURE CHRONIC
     Route: 033
     Dates: start: 201401

REACTIONS (5)
  - Hyperkalaemia [Unknown]
  - Arteriovenous fistula site complication [Recovering/Resolving]
  - Unevaluable event [Recovering/Resolving]
  - Post procedural swelling [Recovering/Resolving]
  - Procedural pain [Recovering/Resolving]
